FAERS Safety Report 6694706-1 (Version None)
Quarter: 2010Q2

REPORT INFORMATION
  Report Type: 
  Country: None (occurrence: None)
  Receive Date: 20100423
  Receipt Date: 20100414
  Transmission Date: 20101027
  Serious: Yes (Hospitalization)
  Sender: FDA-Public Use
  Company Number: A0810000C

PATIENT
  Sex: Female
  Weight: 60.5 kg

DRUGS (4)
  1. ELTROMBOPAG [Suspect]
     Indication: THROMBOCYTOPENIA
     Dosage: 25MG PER DAY
     Route: 048
     Dates: start: 20090402, end: 20090415
  2. BLINDED TRIAL MEDICATION [Suspect]
     Indication: THROMBOCYTOPENIA
     Route: 048
     Dates: start: 20090416, end: 20091013
  3. PEGASYS [Suspect]
     Route: 058
     Dates: start: 20090416, end: 20091008
  4. COPEGUS [Suspect]
     Route: 048
     Dates: start: 20090416, end: 20091013

REACTIONS (2)
  - DIABETES MELLITUS [None]
  - SEPSIS [None]
